FAERS Safety Report 10269952 (Version 2)
Quarter: 2014Q4

REPORT INFORMATION
  Report Type: Report from Study
  Country: AU (occurrence: AU)
  Receive Date: 20140701
  Receipt Date: 20141014
  Transmission Date: 20150528
  Serious: Yes (Other)
  Sender: FDA-Public Use
  Company Number: AU-ROCHE-1424171

PATIENT
  Age: 49 Year
  Sex: Male
  Weight: 70 kg

DRUGS (4)
  1. ORDINE [Concomitant]
     Indication: PAIN
     Dosage: AS REQUIRED
     Route: 048
  2. VEMURAFENIB [Suspect]
     Active Substance: VEMURAFENIB
     Indication: METASTATIC MALIGNANT MELANOMA
     Route: 048
     Dates: start: 20121224, end: 20130122
  3. MS CONTIN [Concomitant]
     Active Substance: MORPHINE SULFATE
     Indication: PAIN
     Route: 048
  4. GABAPEN [Concomitant]
     Active Substance: GABAPENTIN
     Indication: PAIN
     Dosage: 300/600 MG
     Route: 048

REACTIONS (2)
  - Adenocarcinoma pancreas [Not Recovered/Not Resolved]
  - Rash [Recovered/Resolved]

NARRATIVE: CASE EVENT DATE: 20121230
